FAERS Safety Report 16480865 (Version 1)
Quarter: 2019Q2

REPORT INFORMATION
  Report Type: Spontaneous
  Country: US (occurrence: US)
  Receive Date: 20190626
  Receipt Date: 20190626
  Transmission Date: 20190711
  Serious: No
  Sender: FDA-Public Use
  Company Number: US-ACTELION-A-NJ2019-190247

PATIENT
  Age: 72 Year
  Sex: Male
  Weight: 74 kg

DRUGS (18)
  1. TYVASO [Suspect]
     Active Substance: TREPROSTINIL
     Indication: PULMONARY ARTERIAL HYPERTENSION
     Dosage: 36 MCG, QID
     Dates: start: 20190315, end: 201904
  2. NIFEDIPINE. [Concomitant]
     Active Substance: NIFEDIPINE
  3. CARVEDILOL. [Concomitant]
     Active Substance: CARVEDILOL
  4. AMBRISENTAN [Suspect]
     Active Substance: AMBRISENTAN
     Indication: PULMONARY ARTERIAL HYPERTENSION
     Dosage: UNK
     Route: 065
  5. RANEXA [Concomitant]
     Active Substance: RANOLAZINE
  6. VICODIN [Concomitant]
     Active Substance: ACETAMINOPHEN\HYDROCODONE BITARTRATE
  7. OMEPRAZOLE. [Concomitant]
     Active Substance: OMEPRAZOLE
  8. MECLIZINE HCL [Concomitant]
     Active Substance: MECLIZINE HYDROCHLORIDE
  9. UPTRAVI [Suspect]
     Active Substance: SELEXIPAG
     Indication: PULMONARY ARTERIAL HYPERTENSION
     Dosage: 200 MCG, BID
     Route: 048
  10. SIMVASTATIN. [Concomitant]
     Active Substance: SIMVASTATIN
  11. OXYGEN. [Concomitant]
     Active Substance: OXYGEN
  12. LORATADINE. [Concomitant]
     Active Substance: LORATADINE
  13. PROMETHAZINE [Concomitant]
     Active Substance: PROMETHAZINE\PROMETHAZINE HYDROCHLORIDE
  14. LOSARTAN POTASSIUM. [Concomitant]
     Active Substance: LOSARTAN POTASSIUM
  15. BUMEX [Concomitant]
     Active Substance: BUMETANIDE
  16. TYVASO [Suspect]
     Active Substance: TREPROSTINIL
     Dosage: 54 MCG, QD
  17. IMODIUM [Concomitant]
     Active Substance: LOPERAMIDE HYDROCHLORIDE
  18. SILDENAFIL CITRATE. [Concomitant]
     Active Substance: SILDENAFIL CITRATE

REACTIONS (6)
  - Pain in jaw [Unknown]
  - Headache [Unknown]
  - Cough [Unknown]
  - Dyspnoea [Unknown]
  - Weight decreased [Unknown]
  - Oedema peripheral [Unknown]

NARRATIVE: CASE EVENT DATE: 201903
